FAERS Safety Report 4627406-X (Version None)
Quarter: 2005Q1

REPORT INFORMATION
  Report Type: 
  Country: None (occurrence: None)
  Receive Date: 20050331
  Receipt Date: 20050323
  Transmission Date: 20050727
  Serious: Yes (Death)
  Sender: FDA-Public Use
  Company Number: 050324-0000612

PATIENT
  Age: 31 Year
  Sex: Male

DRUGS (1)
  1. METHAMPHETAMINE HCL [Suspect]
     Indication: DRUG ABUSER
     Dosage: 0.5 GM; INH
     Route: 055

REACTIONS (7)
  - BRAIN OEDEMA [None]
  - CEREBRAL HAEMORRHAGE [None]
  - DRUG ABUSER [None]
  - DRUG SCREEN POSITIVE [None]
  - DYSARTHRIA [None]
  - FALL [None]
  - HYPOAESTHESIA [None]
